FAERS Safety Report 4660393-7 (Version None)
Quarter: 2005Q2

REPORT INFORMATION
  Report Type: 
  Country: None (occurrence: None)
  Receive Date: 20050512
  Receipt Date: 20050502
  Transmission Date: 20051028
  Serious: Yes (Other)
  Sender: FDA-Public Use
  Company Number: BE-SANOFI-SYNTHELABO-A01200502989

PATIENT
  Age: 72 Year
  Sex: Female

DRUGS (4)
  1. ELOXATIN [Suspect]
     Indication: COLON CANCER METASTATIC
     Dosage: 460 MG/M2: HYPERTHERMIC INTRAPERITONEAL LINE OVER 30 MINUTES
     Route: 033
  2. FLUOROURACIL [Concomitant]
     Indication: COLON CANCER
     Route: 042
  3. FOLINIC ACID [Concomitant]
     Indication: COLON CANCER
     Route: 042
  4. THYRAX [Concomitant]
     Indication: DRUG USE FOR UNKNOWN INDICATION
     Dosage: UNK
     Route: 065

REACTIONS (3)
  - HYPERGLYCAEMIA [None]
  - HYPERLACTACIDAEMIA [None]
  - METABOLIC ACIDOSIS [None]
